FAERS Safety Report 19102523 (Version 1)
Quarter: 2021Q2

REPORT INFORMATION
  Report Type: Spontaneous
  Country: US (occurrence: US)
  Receive Date: 20210407
  Receipt Date: 20210407
  Transmission Date: 20210717
  Serious: Yes (Hospitalization)
  Sender: FDA-Public Use
  Company Number: None

PATIENT
  Age: 70 Year
  Sex: Female
  Weight: 77.58 kg

DRUGS (22)
  1. LEVOTHYROXINE. [Concomitant]
     Active Substance: LEVOTHYROXINE
  2. CAPECITABINE. [Concomitant]
     Active Substance: CAPECITABINE
  3. CALCIUM +D [Concomitant]
     Active Substance: CALCIUM\VITAMIN D
  4. JANUVIA [Concomitant]
     Active Substance: SITAGLIPTIN PHOSPHATE
  5. METHIMAZOLE. [Concomitant]
     Active Substance: METHIMAZOLE
  6. PRAVACHOL [Concomitant]
     Active Substance: PRAVASTATIN SODIUM
  7. RANITIDINE. [Concomitant]
     Active Substance: RANITIDINE
  8. LEVEMIR [Concomitant]
     Active Substance: INSULIN DETEMIR
  9. LYRICA [Concomitant]
     Active Substance: PREGABALIN
  10. METFORMIN [Concomitant]
     Active Substance: METFORMIN HYDROCHLORIDE
  11. METOPROLOL. [Concomitant]
     Active Substance: METOPROLOL
  12. MORPHINE SULFATE. [Concomitant]
     Active Substance: MORPHINE SULFATE
  13. MULTIVITAMIN [Concomitant]
     Active Substance: VITAMINS
  14. TRADJENTA [Concomitant]
     Active Substance: LINAGLIPTIN
  15. TRAMADOL. [Concomitant]
     Active Substance: TRAMADOL
  16. ATORVASTATIN [Concomitant]
     Active Substance: ATORVASTATIN
  17. HYDROCHLOROTHIAZIDE. [Concomitant]
     Active Substance: HYDROCHLOROTHIAZIDE
  18. GABAPENTIN. [Concomitant]
     Active Substance: GABAPENTIN
  19. LANTUS SOLOSTAR [Concomitant]
     Active Substance: INSULIN GLARGINE
  20. LETROZOLE. [Concomitant]
     Active Substance: LETROZOLE
  21. LAPATINIB [Suspect]
     Active Substance: LAPATINIB
     Indication: BREAST CANCER
     Route: 048
     Dates: start: 20201015
  22. ASPIRIN. [Concomitant]
     Active Substance: ASPIRIN

REACTIONS (1)
  - COVID-19 [None]

NARRATIVE: CASE EVENT DATE: 20210317
